FAERS Safety Report 10457546 (Version 1)
Quarter: 2014Q3

REPORT INFORMATION
  Report Type: Spontaneous
  Country: CN (occurrence: CN)
  Receive Date: 20140916
  Receipt Date: 20140916
  Transmission Date: 20150326
  Serious: Yes (Death, Other)
  Sender: FDA-Public Use
  Company Number: PHHY2014CN119250

PATIENT
  Age: 11 Year
  Sex: Male

DRUGS (6)
  1. METHOTREXATE [Suspect]
     Active Substance: METHOTREXATE
     Indication: PROPHYLAXIS AGAINST GRAFT VERSUS HOST DISEASE
  2. MYCOPHENOLATE MOFETIL. [Suspect]
     Active Substance: MYCOPHENOLATE MOFETIL
     Indication: PROPHYLAXIS AGAINST GRAFT VERSUS HOST DISEASE
  3. CICLOSPORIN [Suspect]
     Active Substance: CYCLOSPORINE
     Indication: PROPHYLAXIS AGAINST GRAFT VERSUS HOST DISEASE
  4. CYCLOPHOSPHAMIDE. [Concomitant]
     Active Substance: CYCLOPHOSPHAMIDE
     Dosage: 55 MG/KG, PER DAY
  5. BUSULFAN [Concomitant]
     Active Substance: BUSULFAN
     Dosage: 3.2 MG/KG, PER DAY
  6. CYTARABINE. [Concomitant]
     Active Substance: CYTARABINE
     Dosage: 4 UNK, UNK

REACTIONS (5)
  - Chronic graft versus host disease [Unknown]
  - Cystitis haemorrhagic [Unknown]
  - Graft versus host disease in skin [Unknown]
  - Lung disorder [Unknown]
  - Respiratory failure [Fatal]
